FAERS Safety Report 22039475 (Version 1)
Quarter: 2023Q1

REPORT INFORMATION
  Report Type: Spontaneous
  Country: US (occurrence: None)
  Receive Date: 20230223
  Receipt Date: 20230223
  Transmission Date: 20230418
  Serious: Yes (Hospitalization)
  Sender: FDA-Public Use
  Company Number: None

PATIENT
  Sex: Male

DRUGS (2)
  1. TOBRAMYCIN [Suspect]
     Active Substance: TOBRAMYCIN
     Indication: Bronchiectasis
     Dosage: OTHER QUANTITY : 300MG/4ML;?FREQUENCY : AS DIRECTED;?
     Route: 055
     Dates: start: 20210114
  2. DILAUDID TAB [Concomitant]

REACTIONS (2)
  - Respiratory failure [None]
  - Cystic fibrosis [None]
